FAERS Safety Report 8256557-6 (Version None)
Quarter: 2012Q2

REPORT INFORMATION
  Report Type: 
  Country: None (occurrence: None)
  Receive Date: 20120403
  Receipt Date: 20120328
  Transmission Date: 20120825
  Serious: Yes (Other)
  Sender: FDA-Public Use
  Company Number: US-PFIZER INC-2011052001

PATIENT
  Sex: Male

DRUGS (8)
  1. ZANAFLEX [Concomitant]
     Dosage: 4 MG, 3X/DAY
  2. METHADONE [Concomitant]
     Dosage: 5 MG, 1 EVERY 8 HOURS
  3. PROMETHAZINE [Concomitant]
     Dosage: 25 MG, 3X/DAY
  4. AMITRIPTYLINE [Concomitant]
     Dosage: 75 MG, 1X/DAY BEFORE BED
  5. OXYMORPHONE [Concomitant]
     Dosage: 30MG TABLETE SUSTAINED RETARD/2XDAY
  6. LYRICA [Suspect]
     Dosage: 150 MG, 3X/DAY
  7. AMITRIPTYLINE [Concomitant]
     Dosage: 100 MG, 1X/DAY, BEFORE BED
  8. OXYCODONE [Concomitant]
     Dosage: 15 MG, 3X/DAY

REACTIONS (9)
  - BACK PAIN [None]
  - SEASONAL ALLERGY [None]
  - INTERVERTEBRAL DISC DEGENERATION [None]
  - ARTHRITIS [None]
  - INTERVERTEBRAL DISC PROTRUSION [None]
  - MIGRAINE [None]
  - SLEEP DISORDER [None]
  - SPINAL DISORDER [None]
  - GASTROOESOPHAGEAL REFLUX DISEASE [None]
